FAERS Safety Report 23106969 (Version 1)
Quarter: 2023Q4

REPORT INFORMATION
  Report Type: Other
  Country: FI (occurrence: FI)
  Receive Date: 20231026
  Receipt Date: 20231026
  Transmission Date: 20240110
  Serious: Yes (Hospitalization, Other)
  Sender: FDA-Public Use
  Company Number: FI-TOLMAR, INC.-22FI032490

PATIENT
  Age: 74 Year
  Sex: Male
  Weight: 81 kg

DRUGS (17)
  1. ELIGARD [Suspect]
     Active Substance: LEUPROLIDE ACETATE
     Indication: Prostate cancer
     Dosage: 22.5 MILLIGRAM, Q 3 MONTH
     Route: 058
     Dates: start: 20170404, end: 20220105
  2. ENZALUTAMIDE [Suspect]
     Active Substance: ENZALUTAMIDE
     Indication: Prostate cancer
     Dosage: UNK UNK, QD
     Route: 048
     Dates: start: 20170404, end: 20220105
  3. NOVORAPID [Suspect]
     Active Substance: INSULIN ASPART
     Indication: Diabetes mellitus
     Dosage: 8-15 IU
     Route: 058
     Dates: start: 20051121
  4. TRESIBA [Suspect]
     Active Substance: INSULIN DEGLUDEC
     Indication: Diabetes mellitus
     Dosage: 25 INTERNATIONAL UNIT, QD
     Route: 058
     Dates: start: 20210305
  5. CALCIUM CARBONATE\CHOLECALCIFEROL [Concomitant]
     Active Substance: CALCIUM CARBONATE\CHOLECALCIFEROL
     Indication: Osteoporosis
     Dosage: UNK
  6. PLAVIX [Concomitant]
     Active Substance: CLOPIDOGREL BISULFATE
     Indication: Coronary artery disease
     Dosage: UNK
  7. ELIQUIS [Concomitant]
     Active Substance: APIXABAN
     Indication: Coronary artery disease
     Dosage: UNK
  8. FOLVITE [Concomitant]
     Active Substance: FOLIC ACID
     Indication: Anaemia
  9. FUROSEMIDE [Concomitant]
     Active Substance: FUROSEMIDE
     Indication: Coronary artery disease
     Dosage: UNK
  10. BISOPROLOL [Concomitant]
     Active Substance: BISOPROLOL\BISOPROLOL FUMARATE
     Indication: Cardiac failure
     Dosage: UNK
  11. LOSARTAN [Concomitant]
     Active Substance: LOSARTAN
     Indication: Hypertonia
     Dosage: UNK
  12. LIPISTAD [Concomitant]
     Indication: Hypercholesterolaemia
  13. NOSPAN [DEXTROMETHORPHAN HYDROBROMIDE] [Concomitant]
     Indication: Back pain
  14. PANADOL [Concomitant]
     Active Substance: ACETAMINOPHEN
     Indication: Pain
     Dosage: UNK
     Dates: start: 20171020
  15. RISPERIDONE [Concomitant]
     Active Substance: RISPERIDONE
     Indication: Product used for unknown indication
  16. TENEX [Concomitant]
     Active Substance: GUANFACINE HYDROCHLORIDE
     Indication: Insomnia
     Dosage: UNK
     Dates: start: 20191230
  17. PANTOPRAZOLE [Concomitant]
     Active Substance: PANTOPRAZOLE
     Indication: Gastrooesophageal reflux disease
     Dosage: UNK
     Dates: start: 20210301

REACTIONS (5)
  - General physical health deterioration [Recovered/Resolved]
  - Confusional state [Recovered/Resolved]
  - Muscular weakness [Recovered/Resolved]
  - Seizure [Recovered/Resolved]
  - Blood glucose fluctuation [Unknown]

NARRATIVE: CASE EVENT DATE: 20211126
